FAERS Safety Report 9938125 (Version 3)
Quarter: 2015Q2

REPORT INFORMATION
  Report Type: Spontaneous
  Country: FR (occurrence: FR)
  Receive Date: 20140303
  Receipt Date: 20150626
  Transmission Date: 20150821
  Serious: Yes (Hospitalization, Other)
  Sender: FDA-Public Use
  Company Number: FR-009507513-1402FRA012418

PATIENT
  Age: 37 Year
  Sex: Male

DRUGS (11)
  1. EFFEXOR [Suspect]
     Active Substance: VENLAFAXINE HYDROCHLORIDE
     Indication: DEPRESSION
     Dosage: 37.5 MG, QD
     Route: 048
     Dates: start: 201312, end: 20140207
  2. PULMODEXANE [Suspect]
     Active Substance: DEXTROMETHORPHAN HYDROBROMIDE
     Indication: ACUTE SINUSITIS
     Dosage: STRENGTH: 300MG/100ML (ORAL SOLUTION SWEETEANED WITH MALTITOL AND SODIUM SACCHARIN)
     Route: 048
     Dates: start: 20140202, end: 20140207
  3. CEFPODOXIME PROXETIL. [Suspect]
     Active Substance: CEFPODOXIME PROXETIL
     Indication: ACUTE SINUSITIS
     Dosage: 200 MG, BID
     Route: 048
     Dates: start: 20140202, end: 20140207
  4. CEFPODOXIME PROXETIL. [Suspect]
     Active Substance: CEFPODOXIME PROXETIL
     Indication: INFLUENZA
  5. NASONEX [Suspect]
     Active Substance: MOMETASONE FUROATE
     Indication: INFLUENZA
  6. PULMODEXANE [Suspect]
     Active Substance: DEXTROMETHORPHAN HYDROBROMIDE
     Indication: INFLUENZA
  7. NASONEX [Suspect]
     Active Substance: MOMETASONE FUROATE
     Indication: ACUTE SINUSITIS
     Dosage: STRENGTH: 50 MICROGRAM/DOSE
     Route: 045
     Dates: start: 20140202, end: 20140207
  8. ACETAMINOPHEN. [Suspect]
     Active Substance: ACETAMINOPHEN
     Indication: INFLUENZA
     Dosage: 1 G, TID
     Route: 048
     Dates: start: 20140203, end: 20140207
  9. TWYNSTA [Concomitant]
     Active Substance: AMLODIPINE BESYLATE\TELMISARTAN
     Dosage: STRENGTH: 40/10 (UNITS NOT PROVIDED), QD -FOR 3 MONTHS
  10. CARBOLEVURE [Suspect]
     Active Substance: YEAST
     Dosage: UNK
     Route: 048
     Dates: start: 20140110, end: 20140207
  11. VENLAFAXINE HYDROCHLORIDE. [Concomitant]
     Active Substance: VENLAFAXINE HYDROCHLORIDE
     Dosage: STRENGTH 37.5 (UNITS NOT PROVIDED)- FOR 9 MONTHS

REACTIONS (1)
  - Pancreatitis acute [Recovered/Resolved]

NARRATIVE: CASE EVENT DATE: 20140207
